FAERS Safety Report 5006888-8 (Version None)
Quarter: 2006Q1

REPORT INFORMATION
  Report Type: 
  Country: None (occurrence: None)
  Receive Date: 20060320
  Receipt Date: 20051010
  Transmission Date: 20060701
  Serious: Yes (Other)
  Sender: FDA-Public Use
  Company Number: 2005-10-0697

PATIENT

DRUGS (2)
  1. PEG-INTRON [Suspect]
     Dosage: 150 MCG QWK SUBCUTANEOUS
     Route: 058
     Dates: start: 20050826
  2. RIBAVIRIIN ORALS [Suspect]
     Dosage: 1200 MG QD ORAL
     Route: 048
     Dates: start: 20050826

REACTIONS (2)
  - ABORTION SPONTANEOUS [None]
  - DRUG EXPOSURE DURING PREGNANCY [None]
